FAERS Safety Report 6234746-X (Version None)
Quarter: 2009Q2

REPORT INFORMATION
  Report Type: 
  Country: None (occurrence: None)
  Receive Date: 20090615
  Receipt Date: 20090305
  Transmission Date: 20091009
  Serious: No
  Sender: FDA-Public Use
  Company Number: DSA_33324_2009

PATIENT
  Age: 55 Year
  Sex: Female

DRUGS (10)
  1. XENAZINE [Suspect]
     Indication: HUNTINGTON'S CHOREA
     Dosage: 25 MG TID
     Dates: start: 20081218
  2. AMANTADINE HCL [Concomitant]
  3. BUSPIRONE HCL [Concomitant]
  4. EFFEXOR [Concomitant]
  5. INDAPAMIDE [Concomitant]
  6. LESCOL [Concomitant]
  7. LOVAZA [Concomitant]
  8. METOPROLOL SUCCINATE [Concomitant]
  9. PREMPRO [Concomitant]
  10. TRAZODONE [Concomitant]

REACTIONS (1)
  - CHEILITIS [None]
